FAERS Safety Report 25956129 (Version 1)
Quarter: 2025Q4

REPORT INFORMATION
  Report Type: Spontaneous
  Country: JP (occurrence: JP)
  Receive Date: 20251024
  Receipt Date: 20251024
  Transmission Date: 20260118
  Serious: Yes (Other)
  Sender: MYLAN
  Company Number: JP-VIATRISJAPAN-2025M1088351AA

PATIENT
  Age: 6 Decade
  Sex: Male

DRUGS (8)
  1. CELECOXIB [Suspect]
     Active Substance: CELECOXIB
     Indication: Osteomyelitis
     Dosage: 200 MILLIGRAM, QD
  2. CELECOXIB [Suspect]
     Active Substance: CELECOXIB
     Dosage: 200 MILLIGRAM, QD
     Route: 065
  3. CELECOXIB [Suspect]
     Active Substance: CELECOXIB
     Dosage: 200 MILLIGRAM, QD
     Route: 065
  4. CELECOXIB [Suspect]
     Active Substance: CELECOXIB
     Dosage: 200 MILLIGRAM, QD
  5. CEFAZOLIN [Suspect]
     Active Substance: CEFAZOLIN
     Indication: Osteomyelitis
     Dosage: 6 GRAM, QD
  6. CEFAZOLIN [Suspect]
     Active Substance: CEFAZOLIN
     Dosage: 6 GRAM, QD
     Route: 065
  7. CEFAZOLIN [Suspect]
     Active Substance: CEFAZOLIN
     Dosage: 6 GRAM, QD
     Route: 065
  8. CEFAZOLIN [Suspect]
     Active Substance: CEFAZOLIN
     Dosage: 6 GRAM, QD

REACTIONS (1)
  - Drug-induced liver injury [Recovering/Resolving]
